FAERS Safety Report 13461029 (Version 3)
Quarter: 2017Q2

REPORT INFORMATION
  Report Type: Report from Study
  Country: US (occurrence: US)
  Receive Date: 20170420
  Receipt Date: 20170519
  Transmission Date: 20170830
  Serious: Yes (Death)
  Sender: FDA-Public Use
  Company Number: US-ROCHE-1667221

PATIENT
  Age: 69 Year
  Sex: Female
  Weight: 44.95 kg

DRUGS (12)
  1. XANAX [Concomitant]
     Active Substance: ALPRAZOLAM
     Indication: ANXIETY
  2. FLONASE (UNITED STATES) [Concomitant]
  3. ESBRIET [Suspect]
     Active Substance: PIRFENIDONE
     Route: 048
  4. PRILOSEC [Concomitant]
     Active Substance: OMEPRAZOLE MAGNESIUM
  5. NEXIUM [Concomitant]
     Active Substance: ESOMEPRAZOLE MAGNESIUM
  6. ZANTAC [Concomitant]
     Active Substance: RANITIDINE HYDROCHLORIDE
  7. OXYGEN. [Concomitant]
     Active Substance: OXYGEN
     Dosage: SHE^S ON IT 24/7
     Route: 065
  8. ESBRIET [Suspect]
     Active Substance: PIRFENIDONE
     Route: 048
     Dates: start: 20160109
  9. ESBRIET [Suspect]
     Active Substance: PIRFENIDONE
     Indication: IDIOPATHIC PULMONARY FIBROSIS
     Dosage: THREE PILLS, THREE TIMES DAILY
     Route: 048
     Dates: end: 20151117
  10. VITAMIN B COMPLEX [Concomitant]
     Active Substance: CYANOCOBALAMIN\DEXPANTHENOL\NIACINAMIDE\PYRIDOXINE HYDROCHLORIDE\RIBOFLAVIN 5^-PHOSPHATE SODIUM\THIAMINE HYDROCHLORIDE\VITAMIN B COMPLEX
  11. ESBRIET [Suspect]
     Active Substance: PIRFENIDONE
     Dosage: 2403 MG PER DAY, 3 CAPSULE TID.
     Route: 048
     Dates: start: 20151123
  12. TESSALON [Concomitant]
     Active Substance: BENZONATATE

REACTIONS (13)
  - Cough [Unknown]
  - Dyspepsia [Unknown]
  - Secretion discharge [Unknown]
  - Hot flush [Recovered/Resolved]
  - Anxiety [Not Recovered/Not Resolved]
  - Viral upper respiratory tract infection [Unknown]
  - Oropharyngeal pain [Recovered/Resolved]
  - Death [Fatal]
  - Insomnia [Unknown]
  - Respiratory disorder [Unknown]
  - Acne [Unknown]
  - Lymphadenopathy [Unknown]
  - Muscle twitching [Unknown]

NARRATIVE: CASE EVENT DATE: 201603
